FAERS Safety Report 13518109 (Version 1)
Quarter: 2017Q2

REPORT INFORMATION
  Report Type: Spontaneous
  Country: US (occurrence: US)
  Receive Date: 20170505
  Receipt Date: 20170505
  Transmission Date: 20170830
  Serious: Yes (Hospitalization, Other)
  Sender: FDA-Public Use
  Company Number: US-GLAXOSMITHKLINE-US2017GSK065750

PATIENT
  Age: 37 Year
  Sex: Female

DRUGS (9)
  1. IMURAN [Concomitant]
     Active Substance: AZATHIOPRINE
  2. ATIVAN [Concomitant]
     Active Substance: LORAZEPAM
  3. HYDROCODONE [Concomitant]
     Active Substance: HYDROCODONE
  4. PREDNISONE. [Concomitant]
     Active Substance: PREDNISONE
  5. CYMBALTA [Concomitant]
     Active Substance: DULOXETINE HYDROCHLORIDE
  6. ROBAXIN [Concomitant]
     Active Substance: METHOCARBAMOL
  7. BENLYSTA [Suspect]
     Active Substance: BELIMUMAB
     Indication: SYSTEMIC LUPUS ERYTHEMATOSUS
     Dosage: UNK, CYC
  8. CELEBREX [Concomitant]
     Active Substance: CELECOXIB
  9. PLAQUENIL [Concomitant]
     Active Substance: HYDROXYCHLOROQUINE SULFATE

REACTIONS (6)
  - Pneumonia [Recovered/Resolved]
  - Confusional state [Unknown]
  - Cough [Recovering/Resolving]
  - Drug dose omission [Unknown]
  - Laryngitis allergic [Recovering/Resolving]
  - Bronchitis [Recovering/Resolving]

NARRATIVE: CASE EVENT DATE: 201610
